FAERS Safety Report 8481127-4 (Version None)
Quarter: 2012Q3

REPORT INFORMATION
  Report Type: 
  Country: None (occurrence: None)
  Receive Date: 20120702
  Receipt Date: 20120626
  Transmission Date: 20120928
  Serious: Yes (Other)
  Sender: FDA-Public Use
  Company Number: PHHY2012AR044219

PATIENT
  Sex: Female

DRUGS (2)
  1. EXELON [Suspect]
     Indication: COGNITIVE DISORDER
     Dosage: 10CM (9.5MG/ 24 HRS); 1 PATCH DAILY
     Route: 062
     Dates: start: 20100101
  2. EXELON [Suspect]
     Indication: AMNESIA

REACTIONS (3)
  - MEDICAL DEVICE DISCOMFORT [None]
  - ACCIDENT [None]
  - ANKLE FRACTURE [None]
